FAERS Safety Report 8799670 (Version 1)
Quarter: 2012Q4

REPORT INFORMATION
  Report Type: Spontaneous
  Country: KR (occurrence: None)
  Receive Date: 20120914
  Receipt Date: 20120914
  Transmission Date: 20130627
  Serious: Yes (Hospitalization)
  Sender: FDA-Public Use
  Company Number: DSA_59395_2012

PATIENT
  Age: 57 Year
  Sex: Male

DRUGS (2)
  1. METRONIDAZOLE (METRONIDAZOLE) [Suspect]
     Indication: HEPATIC ENCEPHALOPATHY
     Dosage: 750 mg/day)
  2. LACTULOSE [Concomitant]

REACTIONS (14)
  - Toxic encephalopathy [None]
  - Chest pain [None]
  - Fall [None]
  - Blood pressure decreased [None]
  - Pallor [None]
  - Contusion [None]
  - Splenomegaly [None]
  - Oedema peripheral [None]
  - Platelet count decreased [None]
  - Rib fracture [None]
  - Haemothorax [None]
  - Dysarthria [None]
  - Ataxia [None]
  - Confusional state [None]
